FAERS Safety Report 22330613 (Version 5)
Quarter: 2023Q2

REPORT INFORMATION
  Report Type: Report from Study
  Country: IL (occurrence: IL)
  Receive Date: 20230517
  Receipt Date: 20230613
  Transmission Date: 20230721
  Serious: Yes (Hospitalization, Other)
  Sender: FDA-Public Use
  Company Number: IL-ABBVIE-4769551

PATIENT
  Age: 65 Year
  Sex: Male

DRUGS (2)
  1. CARBIDOPA\LEVODOPA [Suspect]
     Active Substance: CARBIDOPA\LEVODOPA
     Indication: Parkinson^s disease
     Dosage: DISCONTINUED IN 2023
     Route: 050
     Dates: start: 20230221
  2. CARBIDOPA\LEVODOPA [Suspect]
     Active Substance: CARBIDOPA\LEVODOPA
     Dosage: MORNING DOSAGE(ML)  13.3, CONTINUOUS DOSAGE (ML/H)  2.9, EXTRA DOSAGE (ML)  1.5, STARTED IN 2023
     Route: 050

REACTIONS (2)
  - Fall [Recovering/Resolving]
  - Limb operation [Recovering/Resolving]

NARRATIVE: CASE EVENT DATE: 20230515
